FAERS Safety Report 5026452-4 (Version None)
Quarter: 2006Q2

REPORT INFORMATION
  Report Type: 
  Country: None (occurrence: None)
  Receive Date: 20060613
  Receipt Date: 20060613
  Transmission Date: 20061013
  Serious: Yes (Hospitalization)
  Sender: FDA-Public Use
  Company Number: None

PATIENT
  Age: 70 Year
  Sex: Female
  Weight: 196.2 kg

DRUGS (2)
  1. LORTAB [Suspect]
     Indication: PAIN
     Dosage: 1 TAB  Q6H  PRN   PO
     Route: 048
     Dates: start: 20060528, end: 20060612
  2. ATIVAN [Suspect]
     Indication: ANXIETY
     Dosage: 1 TAB   Q8  PRN   PO
     Route: 048
     Dates: start: 20060605, end: 20060612

REACTIONS (2)
  - BLOOD PRESSURE DECREASED [None]
  - RESPIRATORY DEPRESSION [None]
